FAERS Safety Report 7634239-9 (Version None)
Quarter: 2011Q3

REPORT INFORMATION
  Report Type: 
  Country: None (occurrence: None)
  Receive Date: 20110725
  Receipt Date: 20100903
  Transmission Date: 20111222
  Serious: No
  Sender: FDA-Public Use
  Company Number: US-MYLANLABS-2010S1016451

PATIENT
  Sex: Male
  Weight: 78.93 kg

DRUGS (2)
  1. HALOPERIDOL [Suspect]
     Indication: BIPOLAR DISORDER
     Route: 048
     Dates: end: 20070101
  2. GEODON [Interacting]
     Indication: BIPOLAR DISORDER
     Route: 048
     Dates: start: 20060101, end: 20070101

REACTIONS (3)
  - AMNESIA [None]
  - DRUG INTERACTION [None]
  - GLAUCOMA [None]
